FAERS Safety Report 7919308-8 (Version None)
Quarter: 2011Q4

REPORT INFORMATION
  Report Type: 
  Country: None (occurrence: None)
  Receive Date: 20111117
  Receipt Date: 20111107
  Transmission Date: 20120403
  Serious: Yes (Hospitalization)
  Sender: FDA-Public Use
  Company Number: DE-JNJFOC-20111103116

PATIENT
  Age: 85 Year
  Sex: Female

DRUGS (8)
  1. PAROXETINE HCL [Interacting]
     Indication: PRODUCT USED FOR UNKNOWN INDICATION
     Route: 048
     Dates: start: 20101025, end: 20110722
  2. MIRTAZAPINE [Concomitant]
     Route: 048
  3. ARICEPT [Suspect]
     Indication: PRODUCT USED FOR UNKNOWN INDICATION
     Route: 048
     Dates: start: 20101028, end: 20110729
  4. MIRTAZAPINE [Concomitant]
     Indication: DEPRESSION
     Route: 048
     Dates: start: 20100423
  5. RISPERDAL [Suspect]
     Indication: PRODUCT USED FOR UNKNOWN INDICATION
     Route: 048
     Dates: start: 20101028, end: 20110722
  6. MIRTAZAPINE [Concomitant]
     Route: 048
     Dates: start: 20100423
  7. MIRTAZAPINE [Concomitant]
     Indication: SLEEP DISORDER THERAPY
     Route: 048
  8. OXYCODONE HCL [Suspect]
     Indication: PRODUCT USED FOR UNKNOWN INDICATION
     Route: 048
     Dates: start: 20101122, end: 20110722

REACTIONS (4)
  - PARKINSONISM [None]
  - DRUG INTERACTION [None]
  - PLEUROTHOTONUS [None]
  - GENERAL PHYSICAL HEALTH DETERIORATION [None]
